FAERS Safety Report 16676514 (Version 1)
Quarter: 2019Q3

REPORT INFORMATION
  Report Type: Spontaneous
  Country: DE (occurrence: DE)
  Receive Date: 20190807
  Receipt Date: 20190807
  Transmission Date: 20191004
  Serious: Yes (Hospitalization, Other)
  Sender: FDA-Public Use
  Company Number: DE-DRREDDYS-GER/GER/19/0112794

PATIENT
  Age: 29 Year
  Sex: Male
  Weight: 88 kg

DRUGS (6)
  1. IBUPROFEN. [Suspect]
     Active Substance: IBUPROFEN
     Indication: PRODUCT USED FOR UNKNOWN INDICATION
     Dosage: 2-2-2, BIS 10.03.2018
     Dates: end: 20180310
  2. PSEUDOEPHEDRIN [Concomitant]
     Active Substance: PSEUDOEPHEDRINE
     Indication: PRODUCT USED FOR UNKNOWN INDICATION
     Dosage: 2-2-2, BIS 10.03.2018
     Dates: end: 20180310
  3. COFFEIN [Concomitant]
     Active Substance: CAFFEINE
     Indication: PRODUCT USED FOR UNKNOWN INDICATION
     Dosage: 2-2-2, BIS 10.03.2018
     Route: 048
     Dates: end: 20180310
  4. VITAMIN C (ASCORBINSAEURE) [Concomitant]
     Indication: PRODUCT USED FOR UNKNOWN INDICATION
     Dosage: 2-2-2, BIS 10.03.2018
     Dates: end: 20180310
  5. PARACETAMOL [Concomitant]
     Active Substance: ACETAMINOPHEN
     Indication: PRODUCT USED FOR UNKNOWN INDICATION
     Dosage: 2-2-2, BIS 10.03.2018
     Dates: end: 20180310
  6. CHLORPHENAMIN [Concomitant]
     Active Substance: CHLORPHENIRAMINE MALEATE
     Indication: PRODUCT USED FOR UNKNOWN INDICATION
     Dosage: 2-2-2, BIS 10.03.2018
     Route: 048
     Dates: end: 20180310

REACTIONS (3)
  - Pruritus [Recovered/Resolved]
  - Syncope [Recovered/Resolved]
  - Wound [Recovered/Resolved]
